FAERS Safety Report 6115208-7 (Version None)
Quarter: 2009Q1

REPORT INFORMATION
  Report Type: 
  Country: None (occurrence: None)
  Receive Date: 20090311
  Receipt Date: 20081112
  Transmission Date: 20090719
  Serious: Yes (Hospitalization)
  Sender: FDA-Public Use
  Company Number: US200811002785

PATIENT
  Age: 28 Year
  Sex: Male
  Weight: 104.3 kg

DRUGS (5)
  1. GEMZAR [Suspect]
     Indication: PANCREATIC CARCINOMA METASTATIC
     Dosage: 1000 MG/M2 (2242 MG), INTRAVENOUS
     Route: 042
     Dates: start: 20081008
  2. BACLOFEN [Concomitant]
  3. MS CONTIN [Concomitant]
  4. MS CONTIN [Concomitant]
  5. PANCRELIPASE (PANCRELIPASE) [Concomitant]

REACTIONS (1)
  - PYREXIA [None]
